FAERS Safety Report 5657280-4 (Version None)
Quarter: 2008Q1

REPORT INFORMATION
  Report Type: 
  Country: None (occurrence: None)
  Receive Date: 20080310
  Receipt Date: 20080227
  Transmission Date: 20080703
  Serious: Yes (Hospitalization, Other)
  Sender: FDA-Public Use
  Company Number: US-PFIZER INC-2008018903

PATIENT
  Sex: Female
  Weight: 280 kg

DRUGS (5)
  1. GEODON [Suspect]
     Indication: SCHIZOAFFECTIVE DISORDER
     Route: 048
  2. FLUVOXAMINE MALEATE [Concomitant]
  3. SINGULAIR [Concomitant]
  4. LAMICTAL [Concomitant]
  5. TENIDAP SODIUM [Concomitant]

REACTIONS (3)
  - CARDIAC MURMUR [None]
  - PNEUMONIA [None]
  - REPRODUCTIVE TRACT DISORDER [None]
